FAERS Safety Report 4285120-7 (Version None)
Quarter: 2004Q1

REPORT INFORMATION
  Report Type: 
  Country: None (occurrence: None)
  Receive Date: 20040204
  Receipt Date: 20040123
  Transmission Date: 20041129
  Serious: Yes (Hospitalization)
  Sender: FDA-Public Use
  Company Number: IT-GLAXOSMITHKLINE-B0320954A

PATIENT
  Age: 41 Year
  Sex: Female

DRUGS (1)
  1. CLAVULIN [Suspect]
     Dosage: 2U PER DAY
     Route: 048
     Dates: start: 20030926, end: 20030929

REACTIONS (6)
  - ALANINE AMINOTRANSFERASE INCREASED [None]
  - ASPARTATE AMINOTRANSFERASE INCREASED [None]
  - BLOOD ALKALINE PHOSPHATASE INCREASED [None]
  - BLOOD AMYLASE INCREASED [None]
  - HEPATITIS CHOLESTATIC [None]
  - PANCREATITIS ACUTE [None]
